FAERS Safety Report 10046046 (Version 1)
Quarter: 2014Q1

REPORT INFORMATION
  Report Type: Spontaneous
  Country: US (occurrence: None)
  Receive Date: 20140326
  Receipt Date: 20140326
  Transmission Date: 20141002
  Serious: Yes (Hospitalization)
  Sender: FDA-Public Use
  Company Number: 2014AP002133

PATIENT
  Age: 43 Year
  Sex: Male

DRUGS (2)
  1. QUETIAPINE FUMARATE [Suspect]
     Indication: SCHIZOAFFECTIVE DISORDER
  2. SULASALAZINE [Concomitant]

REACTIONS (5)
  - Priapism [None]
  - Disease recurrence [None]
  - Treatment noncompliance [None]
  - Drug ineffective [None]
  - Wrong drug administered [None]
